FAERS Safety Report 4804456-1 (Version None)
Quarter: 2005Q4

REPORT INFORMATION
  Report Type: 
  Country: None (occurrence: None)
  Receive Date: 20051020
  Receipt Date: 20051011
  Transmission Date: 20060501
  Serious: Yes (Hospitalization)
  Sender: FDA-Public Use
  Company Number: PHNU2005DE03443

PATIENT
  Sex: Male

DRUGS (2)
  1. VOLTAREN [Suspect]
     Indication: PAIN
     Dosage: 50 MG, ONCE/SINGLE
     Route: 048
     Dates: start: 20051009, end: 20051009
  2. PANTOZOL [Concomitant]
     Dates: start: 20051009

REACTIONS (6)
  - DIZZINESS [None]
  - DYSKINESIA [None]
  - DYSPEPSIA [None]
  - HYPERHIDROSIS [None]
  - NAUSEA [None]
  - VISUAL DISTURBANCE [None]
